FAERS Safety Report 10509493 (Version 3)
Quarter: 2014Q4

REPORT INFORMATION
  Report Type: Spontaneous
  Country: AR (occurrence: AR)
  Receive Date: 20141009
  Receipt Date: 20141119
  Transmission Date: 20150528
  Serious: Yes (Hospitalization, Other)
  Sender: FDA-Public Use
  Company Number: PHHY2014AR131369

PATIENT
  Age: 87 Year
  Sex: Female

DRUGS (3)
  1. DIOVAN [Suspect]
     Active Substance: VALSARTAN
     Indication: ANTICOAGULANT THERAPY
     Dosage: 320 MG, QD
     Route: 048
  2. DIOVAN [Suspect]
     Active Substance: VALSARTAN
     Indication: BLOOD PRESSURE ABNORMAL
     Dosage: 2 DF (160 MG), QD
  3. DIOVAN [Suspect]
     Active Substance: VALSARTAN
     Indication: OFF LABEL USE
     Dosage: 0.5 DF (320 MG), QD
     Route: 048

REACTIONS (10)
  - Blood cholesterol increased [Unknown]
  - Osteoporosis [Not Recovered/Not Resolved]
  - Tendonitis [Not Recovered/Not Resolved]
  - Thyroid disorder [Unknown]
  - Gait disturbance [Recovering/Resolving]
  - Arthralgia [Not Recovered/Not Resolved]
  - Arthropathy [Recovering/Resolving]
  - Wrong technique in drug usage process [Unknown]
  - Arrhythmia [Unknown]
  - Hypercoagulation [Recovering/Resolving]

NARRATIVE: CASE EVENT DATE: 20140521
